FAERS Safety Report 9363623 (Version 2)
Quarter: 2013Q3

REPORT INFORMATION
  Report Type: Spontaneous
  Country: TW (occurrence: TW)
  Receive Date: 20130624
  Receipt Date: 20130701
  Transmission Date: 20140515
  Serious: Yes (Hospitalization, Other)
  Sender: FDA-Public Use
  Company Number: TW-RANBAXY-2013RR-70553

PATIENT
  Age: 65 Year
  Sex: Male

DRUGS (4)
  1. RISPERIDONE [Suspect]
     Indication: BIPOLAR DISORDER
     Dosage: 3 MG/DAY
     Route: 065
     Dates: start: 200601
  2. QUETIAPINE [Suspect]
     Indication: BIPOLAR DISORDER
     Dosage: 200 MG/DAY
     Route: 065
  3. CLOZAPINE [Suspect]
     Indication: BIPOLAR DISORDER
     Dosage: 100 MG/DAY
     Route: 065
     Dates: end: 200812
  4. OXCARBAZEPINE [Concomitant]
     Indication: BIPOLAR DISORDER
     Dosage: 600 MG/DAY
     Route: 065
     Dates: start: 200601

REACTIONS (7)
  - Tardive dyskinesia [Recovered/Resolved]
  - Pain [Unknown]
  - Somnolence [Unknown]
  - Salivary hypersecretion [Unknown]
  - Fatigue [Unknown]
  - Weight increased [Unknown]
  - Dyskinesia [Recovered/Resolved]
